FAERS Safety Report 4266304-0 (Version None)
Quarter: 2004Q1

REPORT INFORMATION
  Report Type: 
  Country: None (occurrence: None)
  Receive Date: 20040106
  Receipt Date: 20031226
  Transmission Date: 20041129
  Serious: Yes (Other)
  Sender: FDA-Public Use
  Company Number: 2003121605

PATIENT
  Age: 31 Year
  Sex: Male
  Weight: 86.1834 kg

DRUGS (3)
  1. DILANTIN [Suspect]
     Indication: COMPLEX PARTIAL SEIZURES
     Dosage: 400 MG (DAILY), ORAL
     Route: 048
     Dates: start: 19970101
  2. ALL OTHER NON-THERAPEUTIC PRODUCTS [Concomitant]
  3. NARINE REPETABS (PSEUDOEPHEDRINE SULFATE, LORATADINE) [Concomitant]

REACTIONS (3)
  - ANTICONVULSANT DRUG LEVEL BELOW THERAPEUTIC [None]
  - GRAND MAL CONVULSION [None]
  - PHARMACEUTICAL PRODUCT COMPLAINT [None]
